FAERS Safety Report 20610577 (Version 1)
Quarter: 2022Q1

REPORT INFORMATION
  Report Type: Spontaneous
  Country: US (occurrence: US)
  Receive Date: 20220318
  Receipt Date: 20220318
  Transmission Date: 20220423
  Serious: Yes (Other)
  Sender: FDA-Public Use
  Company Number: US-ELI_LILLY_AND_COMPANY-US202203005069

PATIENT
  Sex: Female

DRUGS (2)
  1. TRULICITY [Suspect]
     Active Substance: DULAGLUTIDE
     Indication: Product used for unknown indication
     Dosage: UNK, UNKNOWN
     Route: 065
  2. DUPILUMAB [Suspect]
     Active Substance: DUPILUMAB
     Indication: Product used for unknown indication
     Dosage: UNK, UNKNOWN
     Route: 065

REACTIONS (11)
  - Pelvic fracture [Unknown]
  - Pain [Unknown]
  - Mobility decreased [Unknown]
  - Eczema [Unknown]
  - Erythema [Unknown]
  - Skin lesion [Unknown]
  - Discomfort [Unknown]
  - Pruritus [Unknown]
  - Sleep disorder [Unknown]
  - Mental disorder [Unknown]
  - Fall [Unknown]
